FAERS Safety Report 9135019 (Version 2)
Quarter: 2013Q2

REPORT INFORMATION
  Report Type: Report from Study
  Country: JP (occurrence: JP)
  Receive Date: 20130304
  Receipt Date: 20130429
  Transmission Date: 20140414
  Serious: Yes (Hospitalization)
  Sender: FDA-Public Use
  Company Number: JP-009507513-1303JPN000540

PATIENT
  Age: 75 Year
  Sex: Female

DRUGS (10)
  1. REFLEX [Suspect]
     Indication: DEPRESSION
     Dosage: 15 MG, QD AT BEDTIME
     Route: 048
     Dates: start: 20111220, end: 20111225
  2. REFLEX [Suspect]
     Dosage: 30 MG, QD AT BEDTIME
     Route: 048
     Dates: start: 20111226, end: 20111226
  3. LORAZEPAM [Concomitant]
     Indication: ANXIETY DISORDER
     Dosage: 1 MG, QD
     Route: 048
     Dates: end: 20111228
  4. LIMAPROST ALFADEX [Concomitant]
     Indication: SPINAL OSTEOARTHRITIS
     Dosage: UNK
     Route: 048
  5. ZOPICLONE [Concomitant]
     Indication: INSOMNIA
     Dosage: UNK
     Route: 048
     Dates: end: 20111228
  6. RALOXIFENE HYDROCHLORIDE [Concomitant]
     Indication: OSTEOPOROSIS PROPHYLAXIS
     Dosage: UNK
     Route: 048
  7. SODIUM PICOSULFATE [Concomitant]
     Indication: CONSTIPATION PROPHYLAXIS
     Dosage: UNK
     Route: 048
  8. AMLODIPINE BESYLATE [Concomitant]
     Indication: HYPERTENSION
     Dosage: UNK
     Route: 048
     Dates: end: 20111228
  9. PRAVASTATIN SODIUM [Concomitant]
     Indication: DYSLIPIDAEMIA
     Dosage: UNK
     Route: 048
     Dates: end: 20111228
  10. MILNACIPRAN HYDROCHLORIDE [Concomitant]
     Indication: DEPRESSION
     Dosage: UNK
     Route: 048
     Dates: start: 20111212, end: 20120105

REACTIONS (2)
  - Bipolar I disorder [Recovered/Resolved]
  - Blood lactate dehydrogenase increased [Recovered/Resolved]
